FAERS Safety Report 14685630 (Version 1)
Quarter: 2018Q1

REPORT INFORMATION
  Report Type: Spontaneous
  Country: FR (occurrence: US)
  Receive Date: 20180327
  Receipt Date: 20180327
  Transmission Date: 20180509
  Serious: Yes (Hospitalization, Other)
  Sender: FDA-Public Use
  Company Number: FR-009507513-1803USA008759

PATIENT
  Age: 62 Year
  Sex: Male

DRUGS (8)
  1. NOXAFIL [Suspect]
     Active Substance: POSACONAZOLE
     Indication: PRODUCT USED FOR UNKNOWN INDICATION
  2. DELURSAN [Concomitant]
     Active Substance: URSODIOL
  3. FLUDARA [Suspect]
     Active Substance: FLUDARABINE PHOSPHATE
     Indication: BONE MARROW CONDITIONING REGIMEN
     Dosage: 60 MG, DAILY
     Route: 041
     Dates: start: 20170614, end: 20170618
  4. BUSILVEX [Suspect]
     Active Substance: BUSULFAN
     Indication: BONE MARROW CONDITIONING REGIMEN
     Dosage: 276 MG, DAILY
     Route: 041
     Dates: start: 20170614, end: 20170617
  5. BACTRIM [Concomitant]
     Active Substance: SULFAMETHOXAZOLE\TRIMETHOPRIM
  6. THYMOGLOBULIN [Suspect]
     Active Substance: LAPINE T-LYMPHOCYTE IMMUNE GLOBULIN
     Indication: BONE MARROW CONDITIONING REGIMEN
     Dosage: 215 MG, DAILY
     Route: 041
     Dates: start: 20170617, end: 20170618
  7. BENZATHINE PHENOXYMETHYL PENICILLIN [Concomitant]
     Active Substance: PENICILLIN V BENZATHINE
  8. ZELITREX [Concomitant]
     Active Substance: VALACYCLOVIR HYDROCHLORIDE

REACTIONS (4)
  - Condition aggravated [Recovered/Resolved with Sequelae]
  - Cytomegalovirus infection [Recovered/Resolved with Sequelae]
  - Cachexia [Unknown]
  - Enterobacter test positive [Unknown]

NARRATIVE: CASE EVENT DATE: 20171012
